FAERS Safety Report 19073452 (Version 2)
Quarter: 2021Q2

REPORT INFORMATION
  Report Type: Spontaneous
  Country: JP (occurrence: JP)
  Receive Date: 20210330
  Receipt Date: 20210507
  Transmission Date: 20210717
  Serious: Yes (Other)
  Sender: FDA-Public Use
  Company Number: NVSJ2021JP004880

PATIENT
  Age: 79 Year
  Sex: Male

DRUGS (2)
  1. BEOVU [Suspect]
     Active Substance: BROLUCIZUMAB-DBLL
     Indication: NEOVASCULAR AGE-RELATED MACULAR DEGENERATION
     Dosage: 6 MG
     Route: 031
     Dates: start: 20210201, end: 20210201
  2. BEOVU [Suspect]
     Active Substance: BROLUCIZUMAB-DBLL
     Dosage: 6 MG
     Route: 031
     Dates: start: 20210304, end: 20210304

REACTIONS (8)
  - Retinal exudates [Unknown]
  - Visual field defect [Unknown]
  - Vitritis [Recovering/Resolving]
  - Vitreous floaters [Recovering/Resolving]
  - Vitreous opacities [Recovering/Resolving]
  - Retinal artery occlusion [Recovered/Resolved with Sequelae]
  - Retinal vasculitis [Recovering/Resolving]
  - Retinal perivascular sheathing [Unknown]

NARRATIVE: CASE EVENT DATE: 20210312
